FAERS Safety Report 23379950 (Version 1)
Quarter: 2024Q1

REPORT INFORMATION
  Report Type: Spontaneous
  Country: CA (occurrence: CA)
  Receive Date: 20240109
  Receipt Date: 20240109
  Transmission Date: 20240409
  Serious: Yes (Other)
  Sender: FDA-Public Use
  Company Number: CA-AUROBINDO-AUR-APL-2024-000161

PATIENT
  Age: 39 Year
  Sex: Female
  Weight: 55 kg

DRUGS (5)
  1. ESCITALOPRAM OXALATE [Suspect]
     Active Substance: ESCITALOPRAM OXALATE
     Indication: Postpartum anxiety
     Dosage: 20 MILLIGRAM, ONCE A DAY
     Route: 048
  2. ESCITALOPRAM OXALATE [Suspect]
     Active Substance: ESCITALOPRAM OXALATE
     Indication: Perinatal depression
  3. PROBIOTICS NOS [Concomitant]
     Active Substance: PROBIOTICS NOS
     Indication: Product used for unknown indication
     Dosage: UNK
     Route: 065
  4. VITAMIN B12 [Concomitant]
     Active Substance: CYANOCOBALAMIN
     Indication: Product used for unknown indication
     Dosage: UNK
     Route: 065
  5. VITAMIN D [Concomitant]
     Active Substance: VITAMIN D NOS
     Indication: Product used for unknown indication
     Dosage: UNK
     Route: 065

REACTIONS (11)
  - Thirst [Recovering/Resolving]
  - Depression [Recovering/Resolving]
  - Affect lability [Recovering/Resolving]
  - Apathy [Recovering/Resolving]
  - Brain fog [Recovering/Resolving]
  - Condition aggravated [Recovering/Resolving]
  - Decreased appetite [Recovering/Resolving]
  - Fatigue [Recovering/Resolving]
  - Suicidal ideation [Recovering/Resolving]
  - Drug ineffective [Recovering/Resolving]
  - Product substitution issue [Recovering/Resolving]
